FAERS Safety Report 17661421 (Version 1)
Quarter: 2020Q2

REPORT INFORMATION
  Report Type: Spontaneous
  Country: ES (occurrence: ES)
  Receive Date: 20200413
  Receipt Date: 20200413
  Transmission Date: 20200713
  Serious: Yes (Other)
  Sender: FDA-Public Use
  Company Number: ES-MYLANLABS-2020M1036333

PATIENT
  Sex: Female

DRUGS (8)
  1. TACROLIMUS. [Suspect]
     Active Substance: TACROLIMUS
     Indication: MIXED CONNECTIVE TISSUE DISEASE
     Dosage: 2.5 TO 3.0 MG PER DAY IN TWO DIVIDED DOSES
     Route: 065
  2. RITUXIMAB. [Concomitant]
     Active Substance: RITUXIMAB
     Indication: MIXED CONNECTIVE TISSUE DISEASE
     Dosage: PERFUSION
     Route: 065
  3. ALPROSTADIL. [Concomitant]
     Active Substance: ALPROSTADIL
     Indication: RAYNAUD^S PHENOMENON
     Dosage: UNK
     Route: 065
  4. BOSENTAN. [Interacting]
     Active Substance: BOSENTAN
     Indication: SKIN ULCER
     Dosage: UNK
     Route: 065
  5. MYCOPHENOLATE MOFETIL. [Suspect]
     Active Substance: MYCOPHENOLATE MOFETIL
     Indication: MIXED CONNECTIVE TISSUE DISEASE
     Dosage: UNK
     Route: 065
  6. AZATHIOPRINE. [Concomitant]
     Active Substance: AZATHIOPRINE
     Indication: MIXED CONNECTIVE TISSUE DISEASE
     Dosage: UNK
     Route: 065
  7. CYCLOPHOSPHAMIDE. [Concomitant]
     Active Substance: CYCLOPHOSPHAMIDE
     Indication: PRODUCT USED FOR UNKNOWN INDICATION
     Dosage: UNK
     Route: 040
  8. ALPROSTADIL. [Concomitant]
     Active Substance: ALPROSTADIL
     Indication: SKIN ULCER

REACTIONS (2)
  - Enterocolitis [Unknown]
  - Labelled drug-drug interaction medication error [Unknown]
